FAERS Safety Report 5920135-1 (Version None)
Quarter: 2008Q4

REPORT INFORMATION
  Report Type: 
  Country: None (occurrence: None)
  Receive Date: 20081015
  Receipt Date: 20081015
  Transmission Date: 20090506
  Serious: Yes (Hospitalization)
  Sender: FDA-Public Use
  Company Number: None

PATIENT
  Age: 73 Year
  Sex: Male
  Weight: 78.7 kg

DRUGS (2)
  1. RANITIDINE [Suspect]
     Dosage: 50 MG BID IV
     Route: 042
     Dates: start: 20080923, end: 20080929
  2. ENOXAPARIN [Suspect]
     Dosage: 80 MG BID SQ
     Route: 058
     Dates: start: 20080919, end: 20080922

REACTIONS (8)
  - CARDIAC FAILURE CONGESTIVE [None]
  - DISSEMINATED INTRAVASCULAR COAGULATION [None]
  - HEPARIN-INDUCED THROMBOCYTOPENIA [None]
  - INTRA-ABDOMINAL HAEMORRHAGE [None]
  - ISCHAEMIA [None]
  - PLATELET AGGREGATION ABNORMAL [None]
  - PNEUMONIA [None]
  - RENAL FAILURE ACUTE [None]
